FAERS Safety Report 26123161 (Version 1)
Quarter: 2025Q4

REPORT INFORMATION
  Report Type: Spontaneous
  Country: BR (occurrence: BR)
  Receive Date: 20251204
  Receipt Date: 20251204
  Transmission Date: 20260117
  Serious: Yes (Other)
  Sender: TEVA
  Company Number: BR-TEVA-VS-3397760

PATIENT
  Age: 43 Year

DRUGS (1)
  1. COPAXONE [Suspect]
     Active Substance: GLATIRAMER ACETATE
     Indication: Product used for unknown indication
     Route: 065

REACTIONS (6)
  - Disease progression [Unknown]
  - Pruritus [Unknown]
  - Influenza like illness [Unknown]
  - Urinary tract infection [Unknown]
  - Sinusitis [Unknown]
  - Ear infection [Unknown]
